FAERS Safety Report 24707759 (Version 2)
Quarter: 2024Q4

REPORT INFORMATION
  Report Type: Spontaneous
  Country: SI (occurrence: SI)
  Receive Date: 20241206
  Receipt Date: 20241213
  Transmission Date: 20250115
  Serious: Yes (Other)
  Sender: BAUSCH AND LOMB
  Company Number: SI-Covis Pharma Europe B.V.-2024COV01401

PATIENT
  Age: 33 Year
  Sex: Female

DRUGS (14)
  1. ALBUTEROL [Suspect]
     Active Substance: ALBUTEROL
     Indication: Product used for unknown indication
     Dosage: AS NEEDED
     Route: 065
  2. ALVESCO [Suspect]
     Active Substance: CICLESONIDE
     Indication: Asthma
     Route: 055
     Dates: start: 201510, end: 201511
  3. ALVESCO [Suspect]
     Active Substance: CICLESONIDE
     Dosage: 2X1 INHALATION AS NEEDED
     Route: 055
     Dates: start: 202405
  4. ALVESCO [Suspect]
     Active Substance: CICLESONIDE
     Dosage: 2X1 INHALATION AS NEEDED
     Route: 055
  5. ALVESCO [Suspect]
     Active Substance: CICLESONIDE
     Route: 055
     Dates: start: 2023
  6. FLUTICASONE FUROATE\VILANTEROL TRIFENATATE [Suspect]
     Active Substance: FLUTICASONE FUROATE\VILANTEROL TRIFENATATE
     Indication: Product used for unknown indication
     Dosage: 92/22MCG
     Route: 065
     Dates: start: 20151110, end: 201511
  7. FLUTICASONE [Suspect]
     Active Substance: FLUTICASONE
     Indication: Product used for unknown indication
     Dosage: 250 MCG 2X1 INHALATION
     Route: 055
     Dates: start: 20151118
  8. FLUTICASONE [Suspect]
     Active Substance: FLUTICASONE
     Dosage: 125 MCG 1 INHALATION PER DAY.
     Route: 055
     Dates: start: 20151118
  9. MOMETASONE [Suspect]
     Active Substance: MOMETASONE
     Indication: Product used for unknown indication
     Dosage: MOMETASONE SPRAY 2X1 PUFF IN EACH NOSTRIL
     Route: 065
     Dates: start: 20230426
  10. OLOPATADINE [Suspect]
     Active Substance: OLOPATADINE
     Indication: Product used for unknown indication
     Dosage: AS NEEDED, ROUTE OF ADMINISTRATION- OCULAR USE
     Route: 050
  11. DESLORATADINE [Suspect]
     Active Substance: DESLORATADINE
     Indication: Product used for unknown indication
     Route: 065
  12. BUDESONIDE\FORMOTEROL [Suspect]
     Active Substance: BUDESONIDE\FORMOTEROL
     Indication: Dyspnoea
     Dosage: 160/4.5 MCG AS NEEDED
     Route: 065
  13. AZITHROMYCIN [Suspect]
     Active Substance: AZITHROMYCIN
     Indication: Product used for unknown indication
     Route: 065
  14. FENOTEROL HYDROBROMIDE\IPRATROPIUM BROMIDE [Concomitant]
     Active Substance: FENOTEROL HYDROBROMIDE\IPRATROPIUM BROMIDE
     Indication: Product used for unknown indication
     Route: 065

REACTIONS (14)
  - Dyspnoea exertional [Unknown]
  - Chest discomfort [Unknown]
  - Cough [Unknown]
  - Vertigo [Unknown]
  - Productive cough [Unknown]
  - Dust allergy [Unknown]
  - Seasonal allergy [Unknown]
  - Allergy to animal [Unknown]
  - Chest pain [Unknown]
  - Ear discomfort [Unknown]
  - Infection [Unknown]
  - Asthma [Unknown]
  - Cough [Unknown]
  - Wheezing [Unknown]

NARRATIVE: CASE EVENT DATE: 20151101
